FAERS Safety Report 4308885-4 (Version None)
Quarter: 2004Q1

REPORT INFORMATION
  Report Type: 
  Country: None (occurrence: None)
  Receive Date: 20040227
  Receipt Date: 20040220
  Transmission Date: 20041129
  Serious: Yes (Hospitalization, Other)
  Sender: FDA-Public Use
  Company Number: 2004011014

PATIENT
  Age: 57 Year
  Sex: Male

DRUGS (7)
  1. NEURONTIN [Suspect]
     Indication: NEUROPATHIC PAIN
     Dosage: 300MG (TID), ORAL
     Route: 048
     Dates: start: 20030516, end: 20031224
  2. ALL OTHER THERAPEUTIC PRODUCTS [Concomitant]
  3. MODURETIC ^MSD^ (HDYROCHLOROTHIAZIDE, AMILORIDE HYDROCHLORIDE) [Concomitant]
  4. ACETYLSALICYLIC ACID SRT [Concomitant]
  5. ISOSORBIDE MONONITRATE [Concomitant]
  6. CLOPIDGREL SULFATE (CLOPIDOGREL SULFATE) [Concomitant]
  7. ESCITALOPRAM (ESCITALOPRAM) [Concomitant]

REACTIONS (2)
  - CARDIAC DISORDER [None]
  - LOSS OF CONSCIOUSNESS [None]
